FAERS Safety Report 15964909 (Version 1)
Quarter: 2019Q1

REPORT INFORMATION
  Report Type: Report from Study
  Country: ES (occurrence: ES)
  Receive Date: 20190215
  Receipt Date: 20190215
  Transmission Date: 20190418
  Serious: Yes (Death, Hospitalization)
  Sender: FDA-Public Use
  Company Number: ES-ACCORD-107519

PATIENT
  Age: 81 Year
  Sex: Male

DRUGS (3)
  1. FUROSEMIDE. [Suspect]
     Active Substance: FUROSEMIDE
     Indication: CARDIAC FAILURE
     Dosage: 1-0-0,DOSAGE FREQUENCY:40 MG,DOSAGE PER DOSE:40 MG,NO. PER FREQUENCY UNIT: 1,FREQUENCY UNIT:1 DAY
     Route: 048
     Dates: start: 2017
  2. AMOXICILLIN/CLAVULANIC ACID [Concomitant]
     Indication: URINARY TRACT INFECTION
     Route: 065
     Dates: start: 20170422
  3. ENALAPRIL [Interacting]
     Active Substance: ENALAPRIL
     Indication: HYPERTENSION
     Dosage: DOSAGE FREQUENCY: 20 MG,DOSAGE PER DOSE:10 MG,NO. FREQUENCY UNIT:2, FREQUENCY UNIT: 1 DAY
     Route: 048
     Dates: start: 2017

REACTIONS (2)
  - Acute kidney injury [Fatal]
  - Drug interaction [Unknown]

NARRATIVE: CASE EVENT DATE: 20170426
